FAERS Safety Report 8816835 (Version 1)
Quarter: 2012Q4

REPORT INFORMATION
  Report Type: Spontaneous
  Country: US (occurrence: None)
  Receive Date: 20121002
  Receipt Date: 20121002
  Transmission Date: 20130627
  Serious: Yes (Other)
  Sender: FDA-Public Use
  Company Number: None

PATIENT

DRUGS (2)
  1. ESCITALOPRAM [Suspect]
     Indication: DEPRESSION
     Dosage: 20 mg 1 tablet daily by mouth
     Route: 048
     Dates: start: 20120620, end: 20120905
  2. ESCITALOPRAM [Suspect]
     Indication: ANXIETY
     Dosage: 20 mg 1 tablet daily by mouth
     Route: 048
     Dates: start: 20120620, end: 20120905

REACTIONS (6)
  - Migraine [None]
  - Hyperacusis [None]
  - Photophobia [None]
  - Nausea [None]
  - Headache [None]
  - Unevaluable event [None]
